FAERS Safety Report 5802361-5 (Version None)
Quarter: 2008Q3

REPORT INFORMATION
  Report Type: 
  Country: None (occurrence: None)
  Receive Date: 20080702
  Receipt Date: 20080625
  Transmission Date: 20090109
  Serious: Yes (Death, Life-Threatening, Hospitalization, Disabling)
  Sender: FDA-Public Use
  Company Number: CERZ-1000052

PATIENT
  Age: 3 Month
  Sex: Male
  Weight: 7 kg

DRUGS (35)
  1. CEREZYME [Suspect]
     Indication: GAUCHER'S DISEASE
     Dosage: 60 U/KG, Q2W, INTRAVENOUS; 600 U/L, INTRAVENOUS; 400 U, Q2W, INTRAVENOUS
     Route: 042
     Dates: start: 20060927, end: 20080101
  2. CEREZYME [Suspect]
     Indication: GAUCHER'S DISEASE
     Dosage: 60 U/KG, Q2W, INTRAVENOUS; 600 U/L, INTRAVENOUS; 400 U, Q2W, INTRAVENOUS
     Route: 042
     Dates: end: 20080410
  3. CEREZYME [Suspect]
     Indication: GAUCHER'S DISEASE
     Dosage: 60 U/KG, Q2W, INTRAVENOUS; 600 U/L, INTRAVENOUS; 400 U, Q2W, INTRAVENOUS
     Route: 042
     Dates: start: 20080128
  4. ANTIBIOTICS-RESSISTANT LACTIC ACID BACTERIAE [Concomitant]
  5. ANTIBIOTICS-RESSISTANT LACTIC ACID BACTERIAE [Concomitant]
  6. ZONISAMIDE (ZONISAMIDE) UNKNOWN [Concomitant]
  7. ZONISAMIDE (ZONISAMIDE) UNKNOWN [Concomitant]
  8. ZONISAMIDE (ZONISAMIDE) UNKNOWN [Concomitant]
  9. ZONISAMIDE (ZONISAMIDE) UNKNOWN [Concomitant]
  10. MIXED KILLED BACTERIA PREPARATIONS [Concomitant]
  11. MIXED KILLED BACTERIA PREPARATIONS [Concomitant]
  12. CARBOCISTEINE (CARBOCISTEINE) [Concomitant]
  13. PROCATEROL HCL [Concomitant]
  14. AMBROXOL HYDROCHLORIDE (AMBROXOL HYDROCHLORIDE) [Concomitant]
  15. DIAZEPAM [Concomitant]
  16. TRICHLORETHYL PHOSPHATE SODIUM UNKNOWN [Concomitant]
  17. CLONAZEPAM (CLONAZEPAM) UNKNOWN [Concomitant]
  18. CLONAZEPAM (CLONAZEPAM) UNKNOWN [Concomitant]
  19. CLONAZEPAM (CLONAZEPAM) UNKNOWN [Concomitant]
  20. CLONAZEPAM (CLONAZEPAM) UNKNOWN [Concomitant]
  21. CLONAZEPAM (CLONAZEPAM) UNKNOWN [Concomitant]
  22. CLONAZEPAM (CLONAZEPAM) UNKNOWN [Concomitant]
  23. CLONAZEPAM (CLONAZEPAM) UNKNOWN [Concomitant]
  24. CEFOTIAM HYDROCHLORIDE [Concomitant]
  25. SODIUM BICARBONATE IN PLASTIC CONTAINER [Concomitant]
  26. SEVOFLURANE [Concomitant]
  27. NITROUS OXIDE W/ OXYGEN [Concomitant]
  28. VECURONIUM BROMIDE [Concomitant]
  29. ATROPINE SULFATE [Concomitant]
  30. CARBAMAZEPINE [Concomitant]
  31. LEVOFLOXACIN [Concomitant]
  32. LEVOFLOXACIN [Concomitant]
  33. TOBRAMYCIN [Concomitant]
  34. TOBRAMYCIN [Concomitant]
  35. CEFDITOREN PIVOXIL (CEFDITOREN PIVOXIL) [Concomitant]

REACTIONS (15)
  - ALVEOLAR PROTEINOSIS [None]
  - APNOEA [None]
  - APNOEIC ATTACK [None]
  - BRONCHITIS [None]
  - CONVULSION [None]
  - DEHYDRATION [None]
  - DISEASE RECURRENCE [None]
  - GASTROENTERITIS [None]
  - INTERSTITIAL LUNG DISEASE [None]
  - NASOPHARYNGITIS [None]
  - PNEUMONIA ASPIRATION [None]
  - PNEUMONIA RESPIRATORY SYNCYTIAL VIRAL [None]
  - RESPIRATORY ARREST [None]
  - RESPIRATORY FAILURE [None]
  - STATUS EPILEPTICUS [None]
